FAERS Safety Report 24980398 (Version 1)
Quarter: 2025Q1

REPORT INFORMATION
  Report Type: Spontaneous
  Country: US (occurrence: None)
  Receive Date: 20250214
  Receipt Date: 20250214
  Transmission Date: 20250409
  Serious: Yes (Other)
  Sender: FDA-CTU
  Company Number: None

PATIENT
  Age: 30 Year
  Sex: Female
  Weight: 56.7 kg

DRUGS (6)
  1. PROTRIPTYLINE [Suspect]
     Active Substance: PROTRIPTYLINE
  2. TOPIRAMATE [Concomitant]
     Active Substance: TOPIRAMATE
  3. TRAZODONE [Concomitant]
     Active Substance: TRAZODONE HYDROCHLORIDE
  4. LEVOTHYROXINE [Concomitant]
     Active Substance: LEVOTHYROXINE
  5. HYDROXYZINE PAMOATE [Concomitant]
     Active Substance: HYDROXYZINE PAMOATE
  6. ALBUTEROL [Concomitant]
     Active Substance: ALBUTEROL

REACTIONS (3)
  - Postpartum haemorrhage [None]
  - Post procedural complication [None]
  - Blood loss anaemia [None]

NARRATIVE: CASE EVENT DATE: 20220307
